FAERS Safety Report 5663701-3 (Version None)
Quarter: 2008Q1

REPORT INFORMATION
  Report Type: 
  Country: None (occurrence: None)
  Receive Date: 20080310
  Receipt Date: 20080226
  Transmission Date: 20080703
  Serious: Yes (Other)
  Sender: FDA-Public Use
  Company Number: 2007US-08644

PATIENT
  Age: 19 Year
  Sex: Female
  Weight: 58.5 kg

DRUGS (1)
  1. ISOTRETINOIN [Suspect]
     Indication: DRUG USE FOR UNKNOWN INDICATION
     Dosage: 30 MG, BID ORAL
     Route: 048
     Dates: start: 20070207, end: 20070409

REACTIONS (3)
  - DRUG EXPOSURE BEFORE PREGNANCY [None]
  - LIVE BIRTH [None]
  - PREGNANCY [None]
